FAERS Safety Report 8394423-6 (Version None)
Quarter: 2012Q2

REPORT INFORMATION
  Report Type: 
  Country: None (occurrence: None)
  Receive Date: 20120530
  Receipt Date: 20120523
  Transmission Date: 20120825
  Serious: Yes (Other)
  Sender: FDA-Public Use
  Company Number: PHFR2012GB002422

PATIENT
  Sex: Female

DRUGS (9)
  1. CLOZARIL [Suspect]
     Dosage: 350 MG, DAILY
     Route: 048
  2. CLOZARIL [Suspect]
     Dosage: 375 MG, DAILY
     Route: 048
     Dates: start: 20120503
  3. INSULIN (NOVAMIX) [Concomitant]
     Dosage: UNK UKN, UNK
  4. HYOSCINE HBR HYT [Concomitant]
     Dosage: 900 UG, DALIY
     Route: 048
  5. CLOZARIL [Suspect]
     Indication: SCHIZOPHRENIA
     Dosage: 375 MG, QD
     Route: 048
     Dates: start: 20030703
  6. AMISULPRIDE [Concomitant]
     Dosage: 300 MG, DAILY
     Route: 048
  7. LEVOTHYROXINE SODIUM [Concomitant]
     Dosage: 100 UG, DAILY
     Route: 048
  8. ZOPICLONE [Concomitant]
     Dosage: 7.5 MG, DAILY
     Route: 048
  9. DIAZEPAM [Concomitant]
     Dosage: 5 MG, DAILY
     Route: 048

REACTIONS (4)
  - HYPOTHYROIDISM [None]
  - CLUMSINESS [None]
  - DIABETES MELLITUS [None]
  - GAIT DISTURBANCE [None]
